FAERS Safety Report 5675854-1 (Version None)
Quarter: 2008Q1

REPORT INFORMATION
  Report Type: 
  Country: None (occurrence: None)
  Receive Date: 20080321
  Receipt Date: 20080310
  Transmission Date: 20080703
  Serious: Yes (Other)
  Sender: FDA-Public Use
  Company Number: US-ASTRAZENECA-2007UW16277

PATIENT
  Age: 14594 Day
  Sex: Male

DRUGS (1)
  1. SEROQUEL [Suspect]
     Indication: MIGRAINE
     Route: 048
     Dates: start: 20010901

REACTIONS (2)
  - HEART INJURY [None]
  - TYPE 2 DIABETES MELLITUS [None]
